FAERS Safety Report 6972429-9 (Version None)
Quarter: 2010Q3

REPORT INFORMATION
  Report Type: 
  Country: None (occurrence: None)
  Receive Date: 20100909
  Receipt Date: 20100729
  Transmission Date: 20110219
  Serious: Yes (Hospitalization, Other)
  Sender: FDA-Public Use
  Company Number: US-BAXTER-2010BH005573

PATIENT
  Age: 41 Year
  Sex: Female
  Weight: 127 kg

DRUGS (68)
  1. HEPARIN SODIUM INJECTION [Suspect]
     Indication: CATHETERISATION CARDIAC
     Route: 040
     Dates: start: 20070731, end: 20070731
  2. HEPARIN SODIUM INJECTION [Suspect]
     Indication: MITRAL VALVE REPLACEMENT
     Route: 040
     Dates: start: 20070731, end: 20070731
  3. HEPARIN SODIUM INJECTION [Suspect]
     Indication: HAEMODIALYSIS
     Route: 040
     Dates: start: 20070731, end: 20070731
  4. HEPARIN SODIUM INJECTION [Suspect]
     Route: 058
     Dates: start: 20070801, end: 20070801
  5. HEPARIN SODIUM INJECTION [Suspect]
     Route: 058
     Dates: start: 20070801, end: 20070801
  6. HEPARIN SODIUM INJECTION [Suspect]
     Route: 058
     Dates: start: 20070801, end: 20070801
  7. HEPARIN SODIUM INJECTION [Suspect]
     Route: 065
     Dates: start: 20070101, end: 20070101
  8. HEPARIN SODIUM INJECTION [Suspect]
     Route: 065
     Dates: start: 20070101, end: 20070101
  9. HEPARIN SODIUM INJECTION [Suspect]
     Route: 065
     Dates: start: 20070101, end: 20070101
  10. HEPARIN SODIUM INJECTION [Suspect]
     Route: 042
     Dates: start: 20080522, end: 20080522
  11. HEPARIN SODIUM INJECTION [Suspect]
     Route: 042
     Dates: start: 20080522, end: 20080522
  12. HEPARIN SODIUM INJECTION [Suspect]
     Route: 042
     Dates: start: 20080522, end: 20080522
  13. HEPARIN SODIUM INJECTION [Suspect]
     Route: 042
     Dates: start: 20080530, end: 20080530
  14. HEPARIN SODIUM INJECTION [Suspect]
     Route: 042
     Dates: start: 20080530, end: 20080530
  15. HEPARIN SODIUM INJECTION [Suspect]
     Route: 042
     Dates: start: 20080530, end: 20080530
  16. HEPARIN SODIUM INJECTION [Suspect]
     Route: 058
     Dates: start: 20070802, end: 20070101
  17. HEPARIN SODIUM INJECTION [Suspect]
     Route: 058
     Dates: start: 20070802, end: 20070101
  18. HEPARIN SODIUM INJECTION [Suspect]
     Route: 058
     Dates: start: 20070802, end: 20070101
  19. HEPARIN SODIUM INJECTION [Suspect]
     Route: 042
     Dates: start: 20080524, end: 20080524
  20. HEPARIN SODIUM INJECTION [Suspect]
     Route: 042
     Dates: start: 20080524, end: 20080524
  21. HEPARIN SODIUM INJECTION [Suspect]
     Route: 042
     Dates: start: 20080524, end: 20080524
  22. HEPARIN SODIUM INJECTION [Suspect]
     Route: 042
     Dates: start: 20070816, end: 20070816
  23. HEPARIN SODIUM INJECTION [Suspect]
     Route: 042
     Dates: start: 20070816, end: 20070816
  24. HEPARIN SODIUM INJECTION [Suspect]
     Route: 042
     Dates: start: 20070816, end: 20070816
  25. HEPARIN SODIUM INJECTION [Suspect]
     Route: 042
     Dates: start: 20080525, end: 20080525
  26. HEPARIN SODIUM INJECTION [Suspect]
     Route: 042
     Dates: start: 20080525, end: 20080525
  27. HEPARIN SODIUM INJECTION [Suspect]
     Route: 042
     Dates: start: 20080525, end: 20080525
  28. HEPARIN SODIUM INJECTION [Suspect]
     Route: 040
     Dates: start: 20070820, end: 20070821
  29. HEPARIN SODIUM INJECTION [Suspect]
     Route: 040
     Dates: start: 20070820, end: 20070821
  30. HEPARIN SODIUM INJECTION [Suspect]
     Route: 040
     Dates: start: 20070820, end: 20070821
  31. HEPARIN SODIUM INJECTION [Suspect]
     Route: 042
     Dates: start: 20080529, end: 20080529
  32. HEPARIN SODIUM INJECTION [Suspect]
     Route: 042
     Dates: start: 20080529, end: 20080529
  33. HEPARIN SODIUM INJECTION [Suspect]
     Route: 042
     Dates: start: 20080529, end: 20080529
  34. HEPARIN SODIUM INJECTION [Suspect]
     Route: 040
     Dates: start: 20070905, end: 20070905
  35. HEPARIN SODIUM INJECTION [Suspect]
     Route: 040
     Dates: start: 20070905, end: 20070905
  36. HEPARIN SODIUM INJECTION [Suspect]
     Route: 040
     Dates: start: 20070905, end: 20070905
  37. HEPARIN SODIUM INJECTION [Suspect]
     Route: 042
     Dates: start: 20080601, end: 20080101
  38. HEPARIN SODIUM INJECTION [Suspect]
     Route: 042
     Dates: start: 20080601, end: 20080101
  39. HEPARIN SODIUM INJECTION [Suspect]
     Route: 042
     Dates: start: 20080601, end: 20080101
  40. HEPARIN SODIUM INJECTION [Suspect]
     Route: 041
     Dates: start: 20070912, end: 20070101
  41. HEPARIN SODIUM INJECTION [Suspect]
     Route: 041
     Dates: start: 20070912, end: 20070101
  42. HEPARIN SODIUM INJECTION [Suspect]
     Route: 041
     Dates: start: 20070912, end: 20070101
  43. HEPARIN SODIUM 5,000 UNITS IN DEXTROSE 5% [Suspect]
     Indication: PRODUCT USED FOR UNKNOWN INDICATION
     Route: 042
     Dates: start: 20080525, end: 20080501
  44. AMIODARONE [Concomitant]
     Indication: PRODUCT USED FOR UNKNOWN INDICATION
     Route: 065
  45. LEVOTHYROXINE SODIUM [Concomitant]
     Indication: PRODUCT USED FOR UNKNOWN INDICATION
     Route: 065
  46. FOLIC ACID [Concomitant]
     Indication: PRODUCT USED FOR UNKNOWN INDICATION
     Route: 065
  47. FUROSEMIDE [Concomitant]
     Indication: PRODUCT USED FOR UNKNOWN INDICATION
     Route: 065
  48. FLUOXETINE [Concomitant]
     Indication: PRODUCT USED FOR UNKNOWN INDICATION
     Route: 065
  49. PANTOPRAZOLE [Concomitant]
     Indication: PRODUCT USED FOR UNKNOWN INDICATION
     Route: 065
  50. GABAPENTIN [Concomitant]
     Indication: PRODUCT USED FOR UNKNOWN INDICATION
     Route: 065
  51. WARFARIN SODIUM [Concomitant]
     Indication: PRODUCT USED FOR UNKNOWN INDICATION
     Route: 065
  52. RENAGEL [Concomitant]
     Indication: PRODUCT USED FOR UNKNOWN INDICATION
     Route: 065
  53. CALCIUM ACETATE [Concomitant]
     Indication: PRODUCT USED FOR UNKNOWN INDICATION
     Route: 065
  54. ALBUTEROL [Concomitant]
     Indication: PRODUCT USED FOR UNKNOWN INDICATION
     Route: 065
  55. SPIRIVA [Concomitant]
     Indication: PRODUCT USED FOR UNKNOWN INDICATION
     Route: 065
  56. SEROQUEL [Concomitant]
     Indication: PRODUCT USED FOR UNKNOWN INDICATION
     Route: 065
  57. LORAZEPAM [Concomitant]
     Indication: PRODUCT USED FOR UNKNOWN INDICATION
     Route: 065
  58. NORCO [Concomitant]
     Indication: PRODUCT USED FOR UNKNOWN INDICATION
     Route: 065
  59. REMODULIN [Concomitant]
     Indication: PRODUCT USED FOR UNKNOWN INDICATION
     Route: 065
  60. ADVAIR DISKUS 100/50 [Concomitant]
     Indication: PRODUCT USED FOR UNKNOWN INDICATION
     Route: 065
  61. VANCOMYCIN [Concomitant]
     Indication: PRODUCT USED FOR UNKNOWN INDICATION
     Route: 042
  62. CEFEPIME [Concomitant]
     Indication: PRODUCT USED FOR UNKNOWN INDICATION
     Route: 042
  63. DIGOXIN [Concomitant]
     Indication: PRODUCT USED FOR UNKNOWN INDICATION
     Route: 048
  64. OXYCONTIN [Concomitant]
     Indication: PRODUCT USED FOR UNKNOWN INDICATION
     Route: 048
  65. TEGRETOL [Concomitant]
     Indication: PRODUCT USED FOR UNKNOWN INDICATION
     Route: 048
  66. FLUCONAZOLE [Concomitant]
     Indication: PRODUCT USED FOR UNKNOWN INDICATION
     Route: 042
  67. FENTANYL CITRATE [Concomitant]
     Indication: PRODUCT USED FOR UNKNOWN INDICATION
     Route: 042
  68. PREDNISONE [Concomitant]
     Indication: PRODUCT USED FOR UNKNOWN INDICATION
     Route: 048

REACTIONS (13)
  - ATRIAL FIBRILLATION [None]
  - BLOOD PRESSURE DECREASED [None]
  - CARDIAC FAILURE CONGESTIVE [None]
  - CHRONIC OBSTRUCTIVE PULMONARY DISEASE [None]
  - ERYTHEMA [None]
  - HEPARIN-INDUCED THROMBOCYTOPENIA [None]
  - MENTAL STATUS CHANGES [None]
  - OVERDOSE [None]
  - PRURITUS [None]
  - RECTAL HAEMORRHAGE [None]
  - RENAL FAILURE [None]
  - RESPIRATORY FAILURE [None]
  - URINARY TRACT INFECTION [None]
